FAERS Safety Report 16984834 (Version 2)
Quarter: 2019Q4

REPORT INFORMATION
  Report Type: Report from Study
  Country: JP (occurrence: JP)
  Receive Date: 20191101
  Receipt Date: 20191118
  Transmission Date: 20200122
  Serious: Yes (Hospitalization)
  Sender: FDA-Public Use
  Company Number: JP-SAKK-2019SA283086AA

PATIENT
  Age: 73 Year
  Sex: Male
  Weight: 53 kg

DRUGS (17)
  1. IRINOTECAN [Suspect]
     Active Substance: IRINOTECAN
     Indication: RECTOSIGMOID CANCER
     Dosage: 183 MG/BODY
     Route: 065
     Dates: start: 20190820
  2. TRAZENTA [Concomitant]
     Active Substance: LINAGLIPTIN
     Indication: DIABETES MELLITUS
     Dosage: 1 DF (5 MG), QD
     Route: 048
     Dates: start: 20181002
  3. ZACRAS [Concomitant]
     Active Substance: AMLODIPINE BESYLATE\AZILSARTAN
     Indication: HYPERTENSION
     Dosage: 1 DF, QD
     Route: 048
     Dates: start: 20191008
  4. FLUOROURACIL. [Suspect]
     Active Substance: FLUOROURACIL
     Dosage: 3672 MG/BODY
     Route: 041
     Dates: start: 20190723
  5. PROTECADIN [Concomitant]
     Active Substance: LAFUTIDINE
     Indication: DECREASED APPETITE
     Dosage: 1 DF (10 MG), QD
     Route: 048
     Dates: start: 20181002
  6. JUZENTAIHOTO [ANGELICA ACUTILOBA ROOT;ASTRAGALUS SPP. ROOT;ATRACTYLODE [Concomitant]
     Active Substance: HERBALS
     Indication: BONE MARROW FAILURE
     Dosage: 2.5 MG, TID
     Route: 048
     Dates: start: 20191008, end: 20191011
  7. AFLIBERCEPT [Suspect]
     Active Substance: AFLIBERCEPT
     Indication: RECTOSIGMOID CANCER
     Dosage: 216 MG/BODY
     Route: 041
     Dates: start: 20190723
  8. FLUOROURACIL. [Suspect]
     Active Substance: FLUOROURACIL
     Dosage: 3062 MG/BODY
     Route: 041
     Dates: start: 20190910
  9. FLUOROURACIL. [Suspect]
     Active Substance: FLUOROURACIL
     Dosage: 612 MG/BODY
     Route: 040
     Dates: start: 20190723
  10. CALCIUM LEVOFOLINATE [Suspect]
     Active Substance: LEVOLEUCOVORIN CALCIUM
     Indication: RECTOSIGMOID CANCER
     Dosage: 306 MG/BODY
     Route: 065
     Dates: start: 20190723
  11. PYDOXAL [Concomitant]
     Active Substance: PYRIDOXAL
     Indication: STOMATITIS
     Dosage: 1 DF (30 MG), QD
     Route: 048
     Dates: start: 20190528, end: 20191011
  12. FLUOROURACIL. [Suspect]
     Active Substance: FLUOROURACIL
     Indication: RECTOSIGMOID CANCER
     Dosage: 489 MG/BODY
     Route: 040
     Dates: start: 20190910
  13. MARZULENE [SODIUM GUALENATE] [Concomitant]
     Indication: MUCOSAL DISORDER
     Dosage: 1 G, TID
     Route: 048
     Dates: start: 20190903, end: 20191011
  14. DECADRON [Concomitant]
     Active Substance: DEXAMETHASONE
     Indication: PROPHYLAXIS OF NAUSEA AND VOMITING
     Dosage: 4 MG, QOD
     Route: 048
     Dates: start: 20191009, end: 20191011
  15. IRINOTECAN [Suspect]
     Active Substance: IRINOTECAN
     Dosage: 229 MG/BODY
     Route: 065
     Dates: start: 20190723
  16. AMLODIPINE [AMLODIPINE BESILATE] [Concomitant]
     Active Substance: AMLODIPINE BESYLATE
     Indication: HYPERTENSION
     Dosage: 1 DF (2.5 MG), QD
     Route: 048
     Dates: start: 20180908, end: 20191011
  17. BIO-THREE [Concomitant]
     Active Substance: HERBALS
     Indication: STOMATITIS
     Dosage: 1 DF, TID
     Route: 048
     Dates: start: 20181120, end: 20191011

REACTIONS (2)
  - Liver carcinoma ruptured [Recovering/Resolving]
  - Gastrointestinal perforation [Recovering/Resolving]

NARRATIVE: CASE EVENT DATE: 20191011
